FAERS Safety Report 6871024-X (Version None)
Quarter: 2010Q3

REPORT INFORMATION
  Report Type: 
  Country: None (occurrence: None)
  Receive Date: 20100721
  Receipt Date: 20100705
  Transmission Date: 20110219
  Serious: Yes (Hospitalization)
  Sender: FDA-Public Use
  Company Number: JP-SOLVAY-00310003576

PATIENT
  Age: 32 Year
  Sex: Female

DRUGS (19)
  1. LUVOX [Suspect]
     Indication: DEPRESSION
     Dosage: 75 MILLIGRAM(S), 25 MILLIGRAM(S)
     Route: 048
     Dates: start: 20081202, end: 20090520
  2. LUVOX [Suspect]
     Indication: DEPRESSION
     Dosage: 75 MILLIGRAM(S), 25 MILLIGRAM(S)
     Route: 048
     Dates: start: 20100118, end: 20100523
  3. FAMOTIDINE [Suspect]
     Indication: GASTROOESOPHAGITIS
     Dosage: 40 MILLIGRAM(S)
     Route: 048
     Dates: start: 20100427, end: 20100523
  4. PRIMPERAN TAB [Suspect]
     Indication: GASTROOESOPHAGITIS
     Dosage: 3 DOSAGE FORM
     Route: 048
     Dates: start: 20100512, end: 20100523
  5. MUCOSTA (REBAMIPIDE) [Suspect]
     Indication: GASTROOESOPHAGITIS
     Dosage: 3 DOSAGE FORM
     Route: 048
     Dates: start: 20100512, end: 20100523
  6. NAUZELIN (DOMPERIDONE) [Suspect]
     Indication: GASTROOESOPHAGITIS
     Dosage: 3 DOSAGE FORM
     Route: 048
     Dates: start: 20100409, end: 20100416
  7. ZYPREXA [Concomitant]
  8. LEVOTOMIN (LEVOMEPROMAZINE MALEATE) [Concomitant]
  9. HALCION [Concomitant]
  10. PAXIL (PAROXETINE YDROCHLORIDE HYDRATE) [Concomitant]
  11. MARZULENE-S (SODIUM AZULENE SULFONATE L-GLUTAMINE) [Concomitant]
  12. LIPIDIL [Concomitant]
  13. PARIET (SODIUM RABEPRAZOLE) [Concomitant]
  14. GASMOTIN (MOSAPRIDE CITRATE) [Concomitant]
  15. STROCAIN (OXETHAZAINE) [Concomitant]
  16. DOGMATYL (SULPIRIDE) [Concomitant]
  17. OMEPRAZOLE [Concomitant]
  18. BUSCOPAN (SCOPOLAMINE BUTYLBROMIDE) [Concomitant]
  19. NIZATIDINE [Concomitant]

REACTIONS (6)
  - GASTROOESOPHAGITIS [None]
  - HEPATIC ENZYME INCREASED [None]
  - HEPATITIS C VIRUS TEST POSITIVE [None]
  - JAUNDICE [None]
  - LIVER DISORDER [None]
  - MALAISE [None]
